FAERS Safety Report 12527434 (Version 2)
Quarter: 2016Q3

REPORT INFORMATION
  Report Type: Spontaneous
  Country: JP (occurrence: JP)
  Receive Date: 20160705
  Receipt Date: 20160810
  Transmission Date: 20161109
  Serious: Yes (Hospitalization)
  Sender: FDA-Public Use
  Company Number: JP-ELI_LILLY_AND_COMPANY-JP201606011252

PATIENT
  Age: 79 Year
  Sex: Male

DRUGS (2)
  1. HUMALOG [Suspect]
     Active Substance: INSULIN LISPRO
     Indication: FULMINANT TYPE 1 DIABETES MELLITUS
     Dosage: 7 IU, 4IU AT 8:00 3IU AT 12:00
     Route: 058
     Dates: start: 20160621, end: 20160621
  2. TRESIBA [Concomitant]
     Active Substance: INSULIN DEGLUDEC
     Indication: FULMINANT TYPE 1 DIABETES MELLITUS
     Dosage: 12 IU, EACH MORNING
     Route: 058
     Dates: start: 20160621

REACTIONS (2)
  - Anti-insulin antibody [Unknown]
  - Hyperglycaemia [Recovering/Resolving]

NARRATIVE: CASE EVENT DATE: 20160621
